FAERS Safety Report 9821538 (Version 1)
Quarter: 2014Q1

REPORT INFORMATION
  Report Type: Spontaneous
  Country: JP (occurrence: JP)
  Receive Date: 20140116
  Receipt Date: 20140116
  Transmission Date: 20141002
  Serious: Yes (Death)
  Sender: FDA-Public Use
  Company Number: JP-AMGEN-JPNSP2014002343

PATIENT
  Age: 53 Year
  Sex: Male

DRUGS (15)
  1. VECTIBIX [Suspect]
     Indication: COLON CANCER
     Dosage: 270 MG, Q2WK
     Route: 041
     Dates: start: 201311, end: 201312
  2. SLOWHEIM [Concomitant]
     Dosage: UNK UNK, UNK
     Route: 048
  3. MINOMYCIN [Concomitant]
     Dosage: UNK UNK, UNK
     Route: 048
  4. LAC-B [Concomitant]
     Dosage: UNK UNK, UNK
     Route: 048
  5. NAUZELIN [Concomitant]
     Dosage: UNK UNK, UNK
     Route: 048
  6. PRIMPERAN [Concomitant]
     Dosage: UNK UNK, UNK
     Route: 048
  7. NEOPAREN [Concomitant]
     Dosage: UNK UNK, UNK
     Route: 042
  8. LASIX                              /00032601/ [Concomitant]
     Dosage: UNK UNK, UNK
     Route: 042
  9. TEPRENONE [Concomitant]
     Dosage: UNK UNK, UNK
     Route: 048
  10. ELEMENMIC [Concomitant]
     Dosage: UNK UNK, UNK
     Route: 042
  11. SOLDACTONE [Concomitant]
     Dosage: UNK UNK, UNK
     Route: 042
  12. FUROSEMIDE [Concomitant]
     Dosage: UNK UNK, UNK
     Route: 048
  13. GASTER                             /00706001/ [Concomitant]
     Dosage: UNK UNK, UNK
     Route: 065
  14. VEEN D [Concomitant]
     Dosage: UNK UNK, UNK
     Route: 042
  15. PARESAFE [Concomitant]
     Dosage: UNK
     Route: 041

REACTIONS (2)
  - Colon cancer [Fatal]
  - Condition aggravated [Fatal]
